FAERS Safety Report 4712350-X (Version None)
Quarter: 2005Q3

REPORT INFORMATION
  Report Type: 
  Country: None (occurrence: None)
  Receive Date: 20050712
  Receipt Date: 20050701
  Transmission Date: 20060218
  Serious: Yes (Other)
  Sender: FDA-Public Use
  Company Number: 200515609US

PATIENT
  Sex: Female
  Weight: 109 kg

DRUGS (3)
  1. LANTUS [Suspect]
     Indication: DIABETES MELLITUS NON-INSULIN-DEPENDENT
     Dosage: DOSE UNIT: UNITS
     Dates: start: 20050630, end: 20050701
  2. DIOVAN [Concomitant]
     Indication: HYPERTENSION
     Dosage: DOSE: UNK
  3. SERUMLIPIDREDUCING AGENTS [Concomitant]
     Indication: BLOOD CHOLESTEROL INCREASED
     Dosage: DOSE: UNK

REACTIONS (3)
  - BLOOD GLUCOSE INCREASED [None]
  - DYSPNOEA [None]
  - GENERALISED OEDEMA [None]
